FAERS Safety Report 18587192 (Version 2)
Quarter: 2020Q4

REPORT INFORMATION
  Report Type: Spontaneous
  Country: CN (occurrence: CN)
  Receive Date: 20201207
  Receipt Date: 20201214
  Transmission Date: 20210114
  Serious: Yes (Other)
  Sender: FDA-Public Use
  Company Number: CN-PFIZER INC-2020477322

PATIENT
  Age: 14 Year
  Sex: Female
  Weight: 40 kg

DRUGS (2)
  1. SODIUM CHLORIDE. [Concomitant]
     Active Substance: SODIUM CHLORIDE
     Indication: CHEMOTHERAPY
     Dosage: 500 ML, 1X/DAY
     Route: 041
     Dates: start: 20201107, end: 20201107
  2. METHOTREXATE. [Suspect]
     Active Substance: METHOTREXATE
     Indication: BONE SARCOMA
     Dosage: 12 G, 1X/DAY
     Route: 041
     Dates: start: 20201107, end: 20201107

REACTIONS (3)
  - Gastrointestinal disorder [Unknown]
  - Vomiting [Recovering/Resolving]
  - Decreased appetite [Unknown]

NARRATIVE: CASE EVENT DATE: 20201107
